FAERS Safety Report 6029347-2 (Version None)
Quarter: 2009Q1

REPORT INFORMATION
  Report Type: 
  Country: None (occurrence: None)
  Receive Date: 20090105
  Receipt Date: 20081219
  Transmission Date: 20090719
  Serious: No
  Sender: FDA-Public Use
  Company Number: 2008-187444-NL

PATIENT
  Age: 52 Year
  Sex: Female

DRUGS (11)
  1. ROCURONIUM BROMIDE [Suspect]
     Indication: MUSCLE RELAXANT THERAPY
     Dates: start: 20081101, end: 20081101
  2. FENTANYL [Suspect]
     Indication: INDUCTION OF ANAESTHESIA
     Dates: start: 20081101, end: 20081101
  3. ETOMIDATE [Suspect]
     Indication: INDUCTION OF ANAESTHESIA
     Dates: start: 20081101, end: 20081101
  4. SEVOFLURANE [Suspect]
     Indication: INDUCTION OF ANAESTHESIA
     Dates: start: 20081101, end: 20081101
  5. SUCCINYLCHOLINE CHLORIDE [Concomitant]
  6. THEOPHYLLINE [Concomitant]
  7. LEVOTHYROXINE SODIUM [Concomitant]
  8. DICLOFENAC SODIUM [Concomitant]
  9. INSULIN [Concomitant]
  10. RUTOSIDE [Concomitant]
  11. ACETYLSALICYLIC ACID SRT [Concomitant]

REACTIONS (4)
  - BRONCHOSPASM [None]
  - COMA [None]
  - DRUG HYPERSENSITIVITY [None]
  - HUMERUS FRACTURE [None]
